FAERS Safety Report 7410238-7 (Version None)
Quarter: 2011Q2

REPORT INFORMATION
  Report Type: 
  Country: None (occurrence: None)
  Receive Date: 20110412
  Receipt Date: 20110331
  Transmission Date: 20111010
  Serious: Yes (Hospitalization)
  Sender: FDA-Public Use
  Company Number: IT-BAYER-2011-028240

PATIENT
  Sex: Male

DRUGS (10)
  1. SIMVASTATIN [Concomitant]
     Dosage: DAILY DOSE 20 MG
     Route: 048
  2. ASPIRIN [Suspect]
     Indication: PLATELET AGGREGATION INHIBITION
     Dosage: 100 MG, QD
     Route: 048
     Dates: start: 20100323, end: 20110323
  3. CARDURA [Concomitant]
     Dosage: DAILY DOSE 4 MG
     Route: 048
  4. LASIX [Concomitant]
     Dosage: DAILY DOSE 50 MG
     Route: 048
  5. COUMADIN [Suspect]
     Dosage: TOOK HALF TABLET
     Dates: start: 20110322
  6. NITROGLICERINA [Concomitant]
     Dosage: DAILY DOSE 10 MG
     Route: 062
  7. IRBESARTAN + HYDROCHLOROTHIAZIDE [Concomitant]
     Dosage: UNK
     Route: 048
  8. COUMADIN [Suspect]
     Dosage: 5 MG, QD
     Route: 048
     Dates: start: 20100323, end: 20110320
  9. ALLOPURINOL [Concomitant]
     Dosage: DAILY DOSE 300 MG
     Route: 048
  10. CLEXANE [Suspect]
     Dosage: UNK
     Route: 058
     Dates: start: 20100323, end: 20110323

REACTIONS (2)
  - HAEMOPTYSIS [None]
  - INTERNATIONAL NORMALISED RATIO INCREASED [None]
